FAERS Safety Report 17106293 (Version 1)
Quarter: 2019Q4

REPORT INFORMATION
  Report Type: Report from Study
  Country: CA (occurrence: CA)
  Receive Date: 20191203
  Receipt Date: 20191203
  Transmission Date: 20200122
  Serious: Yes (Hospitalization, Other)
  Sender: FDA-Public Use
  Company Number: CA-SA-2019SA039749

PATIENT
  Age: 19 Month
  Sex: Male

DRUGS (28)
  1. DIGOXIN. [Concomitant]
     Active Substance: DIGOXIN
     Dosage: 38 UG, BID
     Route: 065
  2. BUDESONIDE. [Concomitant]
     Active Substance: BUDESONIDE
     Dosage: UNK, UNK
     Route: 065
  3. ENALAPRIL [Concomitant]
     Active Substance: ENALAPRIL
     Dosage: 2.8 MG, Q12H
     Route: 065
  4. HEPARIN [Concomitant]
     Active Substance: HEPARIN SODIUM
     Dosage: 3 ML, QD
     Route: 065
  5. OMEPRAZOLE. [Concomitant]
     Active Substance: OMEPRAZOLE
     Dosage: 10 MG, BID
     Route: 065
  6. TYLENOL [Concomitant]
     Active Substance: ACETAMINOPHEN
     Indication: PREMEDICATION
     Route: 065
  7. IPRATROPIUM [Concomitant]
     Active Substance: IPRATROPIUM
     Dosage: UNK, UNK
     Route: 065
  8. CARVEDILOL. [Concomitant]
     Active Substance: CARVEDILOL
     Dosage: 5.5 MG, BID
     Route: 065
  9. EPINEPHRINE. [Concomitant]
     Active Substance: EPINEPHRINE
     Dosage: 0.11 MG, PRN
     Route: 030
  10. HYDROCORTISONE SODIUM SUCCINATE [Concomitant]
     Active Substance: HYDROCORTISONE SODIUM SUCCINATE
     Dosage: 10 MG, PRN
     Route: 042
  11. DIPHENHYDRAMINE. [Concomitant]
     Active Substance: DIPHENHYDRAMINE
     Dosage: 11 MG, Q4H PRN
     Route: 042
  12. SPIRONOLACTONE. [Concomitant]
     Active Substance: SPIRONOLACTONE
     Dosage: 11 MG, QD
     Route: 065
  13. PULMOZYME [Concomitant]
     Active Substance: DORNASE ALFA
     Dosage: UNK, UNK
     Route: 065
  14. TOBRAMYCIN. [Concomitant]
     Active Substance: TOBRAMYCIN
     Dosage: 10 MG, Q12H
     Route: 039
  15. HYDROCORTISONE SODIUM SUCCINATE [Concomitant]
     Active Substance: HYDROCORTISONE SODIUM SUCCINATE
     Dosage: 20 MG PRN
     Route: 042
  16. VITAMIN D [COLECALCIFEROL] [Concomitant]
     Active Substance: CHOLECALCIFEROL
     Dosage: 1000 MGQD
     Route: 065
  17. ACETAMINOPHEN. [Concomitant]
     Active Substance: ACETAMINOPHEN
     Dosage: 170 MG, Q6H
     Route: 048
  18. BENADRYL [Concomitant]
     Active Substance: DIPHENHYDRAMINE HYDROCHLORIDE
     Route: 065
  19. ALGLUCOSIDASE ALFA [Suspect]
     Active Substance: ALGLUCOSIDASE ALFA
     Indication: GLYCOGEN STORAGE DISEASE TYPE II
     Dosage: 500 MG, QOW
     Route: 041
     Dates: start: 20170920
  20. PEG [PREGABALIN] [Concomitant]
     Dosage: UNK, UNK
     Route: 065
  21. VITAMIN D [COLECALCIFEROL] [Concomitant]
     Active Substance: CHOLECALCIFEROL
     Dosage: 100 IU, QD
     Route: 065
  22. BECLOMETHASONE [BECLOMETASONE DIPROPIONATE] [Concomitant]
     Dosage: 100 UG (1 PUFF), BID
     Route: 055
  23. TOBRAMYCIN. [Concomitant]
     Active Substance: TOBRAMYCIN
     Dosage: 1 MG, BID
     Route: 065
  24. BOTOX [Concomitant]
     Active Substance: ONABOTULINUMTOXINA
     Dosage: UNK UNK, Q3M
     Route: 065
  25. CHLORHEXIDINE GLUCONATE. [Concomitant]
     Active Substance: CHLORHEXIDINE GLUCONATE
     Dosage: 0.12 %, PRN
     Route: 048
  26. ENALAPRIL [Concomitant]
     Active Substance: ENALAPRIL
     Dosage: 2.75 MG, BID
     Route: 065
  27. HYDROMORPHONE [Concomitant]
     Active Substance: HYDROMORPHONE
     Dosage: UNK, UNK
     Route: 065
  28. DIPHENHYDRAMINE. [Concomitant]
     Active Substance: DIPHENHYDRAMINE
     Dosage: 2 MG, PRN
     Route: 042

REACTIONS (15)
  - Nasopharyngitis [Unknown]
  - Pyrexia [Unknown]
  - Respiratory disorder [Unknown]
  - Respiratory distress [Recovered/Resolved]
  - Disease progression [Unknown]
  - Dyspnoea [Unknown]
  - Vomiting [Unknown]
  - Pyrexia [Recovered/Resolved]
  - Dyspnoea [Recovered/Resolved]
  - Off label use [Unknown]
  - Vascular device infection [Recovered/Resolved]
  - Flushing [Recovered/Resolved]
  - Secretion discharge [Recovered/Resolved]
  - Blood pressure diastolic decreased [Recovered/Resolved]
  - Wheezing [Recovered/Resolved]

NARRATIVE: CASE EVENT DATE: 20190220
